FAERS Safety Report 10736519 (Version 1)
Quarter: 2015Q1

REPORT INFORMATION
  Report Type: Spontaneous
  Country: US (occurrence: US)
  Receive Date: 20150126
  Receipt Date: 20150126
  Transmission Date: 20150721
  Serious: Yes (Hospitalization)
  Sender: FDA-Public Use
  Company Number: US-NOVOPROD-430928

PATIENT
  Age: 22 Year
  Sex: Male
  Weight: 68.93 kg

DRUGS (2)
  1. NOVOLOG [Concomitant]
     Active Substance: INSULIN ASPART
     Indication: TYPE 1 DIABETES MELLITUS
     Dosage: 14 UNITS IN THE MORNING, 7 UNITS AT LUNCH, 14 UNITS AT NIGHT
  2. LEVEMIR [Suspect]
     Active Substance: INSULIN DETEMIR
     Indication: TYPE 1 DIABETES MELLITUS
     Dosage: 21 U, BID
     Route: 058
     Dates: start: 20141001

REACTIONS (4)
  - Hypokalaemia [Unknown]
  - Acute kidney injury [Unknown]
  - Device failure [Unknown]
  - Diabetic ketoacidosis [Recovered/Resolved]

NARRATIVE: CASE EVENT DATE: 20141124
